FAERS Safety Report 5255133-7 (Version None)
Quarter: 2007Q1

REPORT INFORMATION
  Report Type: 
  Country: None (occurrence: None)
  Receive Date: 20070228
  Receipt Date: 20070219
  Transmission Date: 20070707
  Serious: Yes (Hospitalization)
  Sender: FDA-Public Use
  Company Number: ANTA0700057

PATIENT
  Age: 65 Year
  Sex: Female

DRUGS (2)
  1. ANTARA(FENOFIBRATE) CAPSULE [Suspect]
     Indication: HYPERCHOLESTEROLAEMIA
  2. WARFARIN SODIUM [Suspect]
     Indication: ATRIAL FIBRILLATION

REACTIONS (8)
  - ARTHRALGIA [None]
  - DRUG INTERACTION [None]
  - HAEMARTHROSIS [None]
  - HYPERTRIGLYCERIDAEMIA [None]
  - INTERNATIONAL NORMALISED RATIO INCREASED [None]
  - MELAENA [None]
  - NORMOCHROMIC NORMOCYTIC ANAEMIA [None]
  - RENAL FAILURE ACUTE [None]
